FAERS Safety Report 8901805 (Version 2)
Quarter: 2013Q1

REPORT INFORMATION
  Report Type: Spontaneous
  Country: CN (occurrence: None)
  Receive Date: 20121105
  Receipt Date: 20121105
  Transmission Date: 20140127
  Serious: Yes (Other)
  Sender: FDA-Public Use
  Company Number: 7170261

PATIENT
  Age: 38 Year
  Sex: Male

DRUGS (1)
  1. EUTHYROX [Suspect]
     Indication: HYPOTHYROIDISM
     Dosage: 1.5 TO 2.5 TABLETS
     Route: 048
     Dates: start: 201208, end: 20121022

REACTIONS (1)
  - Angina pectoris [None]
